FAERS Safety Report 9369907 (Version 1)
Quarter: 2013Q2

REPORT INFORMATION
  Report Type: Spontaneous
  Country: US (occurrence: US)
  Receive Date: 20130626
  Receipt Date: 20130626
  Transmission Date: 20140414
  Serious: Yes (Other)
  Sender: FDA-Public Use
  Company Number: US-PFIZER INC-2013187580

PATIENT
  Age: 63 Year
  Sex: Male
  Weight: 85.26 kg

DRUGS (1)
  1. VIAGRA [Suspect]
     Indication: ERECTILE DYSFUNCTION
     Dosage: 100 MG, AS NEEDED
     Route: 048
     Dates: start: 2000, end: 2006

REACTIONS (2)
  - Prostate cancer [Unknown]
  - Prostatic disorder [Unknown]
